FAERS Safety Report 5141550-2 (Version None)
Quarter: 2006Q4

REPORT INFORMATION
  Report Type: 
  Country: None (occurrence: None)
  Receive Date: 20061101
  Receipt Date: 20060927
  Transmission Date: 20070319
  Serious: Yes (Hospitalization)
  Sender: FDA-Public Use
  Company Number: JP-BRISTOL-MYERS SQUIBB COMPANY-13525480

PATIENT
  Age: 72 Year
  Sex: Male

DRUGS (4)
  1. FUNGIZONE [Suspect]
     Indication: PULMONARY MYCOSIS
     Route: 041
     Dates: start: 20041229, end: 20050601
  2. METHOTREXATE [Concomitant]
  3. FLUCONAZOLE [Concomitant]
     Indication: INFECTION
  4. FUNGUARD [Concomitant]
     Indication: INFECTION
     Route: 041

REACTIONS (1)
  - PANCYTOPENIA [None]
